FAERS Safety Report 9465504 (Version 1)
Quarter: 2013Q3

REPORT INFORMATION
  Report Type: Spontaneous
  Country: GB (occurrence: GB)
  Receive Date: 20130820
  Receipt Date: 20130820
  Transmission Date: 20140515
  Serious: Yes (Hospitalization, Other)
  Sender: FDA-Public Use
  Company Number: GB-BRISTOL-MYERS SQUIBB COMPANY-19179720

PATIENT
  Age: 38 Year
  Sex: Female
  Weight: 82.6 kg

DRUGS (2)
  1. EXENATIDE [Suspect]
     Dosage: 5 MICROGRAMS FOR FOUR WEEKS THEN INCREASED TO 10 MICROGRAMS.
     Route: 058
     Dates: start: 20120810
  2. EXENATIDE [Suspect]
     Dosage: 5 MICROGRAMS FOR FOUR WEEKS THEN INCREASED TO 10 MICROGRAMS.?10AUG2012-ONG?SEP2012-19OCT2012.
     Route: 058
     Dates: start: 201209, end: 20121019

REACTIONS (1)
  - Cholecystitis acute [Recovered/Resolved]
